FAERS Safety Report 11139470 (Version 1)
Quarter: 2015Q2

REPORT INFORMATION
  Report Type: Spontaneous
  Country: US (occurrence: None)
  Receive Date: 20150526
  Receipt Date: 20150526
  Transmission Date: 20150821
  Serious: Yes (Hospitalization)
  Sender: FDA-Public Use
  Company Number: None

PATIENT
  Age: 71 Year
  Sex: Male
  Weight: 111 kg

DRUGS (24)
  1. AMIODARONE [Suspect]
     Active Substance: AMIODARONE
     Indication: CORONARY ARTERY DISEASE
     Route: 048
  2. QUETIAPINE (SEROQUEL) [Concomitant]
  3. CHOLECALCIFEROL (VITAMIN D3) [Concomitant]
  4. VITAMNIN - THERAPEUTIC MULTIVITAMINS W/MINERALS (CENTRUM SILVER, THERA-M) [Concomitant]
  5. SIMVASTATIN. [Concomitant]
     Active Substance: SIMVASTATIN
  6. MELATONIN [Concomitant]
     Active Substance: MELATONIN
  7. BISACODYL (DULCOLAX) [Concomitant]
  8. ZOFRAN [Concomitant]
     Active Substance: ONDANSETRON HYDROCHLORIDE
  9. LORAZEPAM (ATIVAN) [Concomitant]
  10. BOOST [Concomitant]
  11. ASPIRIN. [Concomitant]
     Active Substance: ASPIRIN
  12. TYLENOL [Concomitant]
     Active Substance: ACETAMINOPHEN
  13. DOCUSATE SODIUM-SENNOSIDES (SENOKOT S) [Concomitant]
  14. INSULIN LISPRO [Concomitant]
     Active Substance: INSULIN LISPRO
  15. FUROSEMIDE. [Concomitant]
     Active Substance: FUROSEMIDE
  16. GEMFIBROZIL. [Concomitant]
     Active Substance: GEMFIBROZIL
  17. VICODIN [Concomitant]
     Active Substance: ACETAMINOPHEN\HYDROCODONE BITARTRATE
  18. WARFARIN [Suspect]
     Active Substance: WARFARIN
     Indication: SURGERY
     Route: 048
  19. LIDOCAINE (LIDODERM) [Concomitant]
  20. CARVEDILOL (COREG) [Concomitant]
  21. POLYETHYLENE GLUCOL (GLYCOLAX, MIRALAX) [Concomitant]
  22. GUAIFENESIN. [Concomitant]
     Active Substance: GUAIFENESIN
  23. FAMOTIDINE. [Concomitant]
     Active Substance: FAMOTIDINE
  24. LEVOTHYROXINE [Concomitant]
     Active Substance: LEVOTHYROXINE

REACTIONS (9)
  - Haemoglobin decreased [None]
  - Nausea [None]
  - Haematuria [None]
  - Hypophagia [None]
  - International normalised ratio increased [None]
  - Thrombosis [None]
  - Haematocrit decreased [None]
  - Hypoglycaemia [None]
  - Penile oedema [None]

NARRATIVE: CASE EVENT DATE: 20150503
